FAERS Safety Report 6510508-0 (Version None)
Quarter: 2009Q4

REPORT INFORMATION
  Report Type: 
  Country: None (occurrence: None)
  Receive Date: 20091222
  Receipt Date: 20091217
  Transmission Date: 20100525
  Serious: Yes (Other)
  Sender: FDA-Public Use
  Company Number: JP-MERCK-0912USA01656

PATIENT
  Age: 53 Year
  Sex: Male
  Weight: 55 kg

DRUGS (8)
  1. DECADRON [Suspect]
     Indication: CUSHING'S SYNDROME
     Route: 048
     Dates: start: 20081202, end: 20081202
  2. DECADRON [Suspect]
     Route: 048
     Dates: start: 20081113, end: 20081113
  3. NATEGLINIDE [Concomitant]
     Indication: DIABETES MELLITUS
     Route: 048
     Dates: start: 20030101
  4. METFORMIN HYDROCHLORIDE [Concomitant]
     Indication: DIABETES MELLITUS
     Route: 048
     Dates: start: 20030101
  5. DOXAZOSIN MESYLATE [Concomitant]
     Indication: HYPERTENSION
     Route: 048
     Dates: start: 20081103
  6. PROPRANOLOL HYDROCHLORIDE [Concomitant]
     Indication: HYPERTENSION
     Route: 065
     Dates: start: 20081103
  7. NOVORAPID [Concomitant]
     Indication: DIABETES MELLITUS
     Route: 058
  8. LEVEMIR [Concomitant]
     Indication: DIABETES MELLITUS
     Route: 058

REACTIONS (1)
  - PHAEOCHROMOCYTOMA CRISIS [None]
